FAERS Safety Report 12567253 (Version 1)
Quarter: 2016Q3

REPORT INFORMATION
  Report Type: Report from Study
  Country: CO (occurrence: CO)
  Receive Date: 20160718
  Receipt Date: 20160718
  Transmission Date: 20161109
  Serious: Yes (Other)
  Sender: FDA-Public Use
  Company Number: CO-REGENERON PHARMACEUTICALS, INC.-2016-19394

PATIENT

DRUGS (2)
  1. EYLEA [Suspect]
     Active Substance: AFLIBERCEPT
     Dosage: 1 DF DOSAGE FORM, Q2MON, TWO INJECTIONS WERE APPLIED IN EVERY EYE
     Route: 031
     Dates: start: 2015, end: 2015
  2. EYLEA [Suspect]
     Active Substance: AFLIBERCEPT
     Indication: AGE-RELATED MACULAR DEGENERATION
     Dosage: 1 DF DOSAGE FORM, Q2MON, TWO INJECTIONS WERE APPLIED IN EVERY EYE
     Route: 031
     Dates: start: 20131007, end: 20131007

REACTIONS (1)
  - Pterygium [Recovering/Resolving]

NARRATIVE: CASE EVENT DATE: 20160101
